FAERS Safety Report 14441054 (Version 2)
Quarter: 2018Q2

REPORT INFORMATION
  Report Type: Report from Study
  Country: US (occurrence: US)
  Receive Date: 20180125
  Receipt Date: 20180423
  Transmission Date: 20180711
  Serious: No
  Sender: FDA-Public Use
  Company Number: US-AMGEN-USASL2017179149

PATIENT
  Age: 63 Year
  Sex: Female

DRUGS (1)
  1. REPATHA [Suspect]
     Active Substance: EVOLOCUMAB
     Indication: TYPE IIA HYPERLIPIDAEMIA
     Dosage: UNK UNK, QMO
     Route: 065

REACTIONS (8)
  - Lacrimation increased [Unknown]
  - Pain in extremity [Unknown]
  - Eye swelling [Unknown]
  - Abdominal discomfort [Unknown]
  - Vomiting [Unknown]
  - Wheezing [Unknown]
  - Feeling abnormal [Unknown]
  - Face oedema [Unknown]
